FAERS Safety Report 5562499-7 (Version None)
Quarter: 2007Q4

REPORT INFORMATION
  Report Type: 
  Country: None (occurrence: None)
  Receive Date: 20071217
  Receipt Date: 20071126
  Transmission Date: 20080405
  Serious: No
  Sender: FDA-Public Use
  Company Number: GB-DENTSPLY-2007-0084-EUR

PATIENT
  Age: 41 Year
  Sex: Male

DRUGS (1)
  1. ORAQIX [Suspect]
     Indication: ANAESTHESIA
     Dates: start: 20071106, end: 20071106

REACTIONS (6)
  - BODY TEMPERATURE INCREASED [None]
  - ERYTHEMA [None]
  - HEADACHE [None]
  - NAUSEA [None]
  - PRURITUS [None]
  - URTICARIA [None]
